FAERS Safety Report 7246769-2 (Version None)
Quarter: 2011Q1

REPORT INFORMATION
  Report Type: 
  Country: None (occurrence: None)
  Receive Date: 20110127
  Receipt Date: 20110121
  Transmission Date: 20110831
  Serious: Yes (Death)
  Sender: FDA-Public Use
  Company Number: JP-PFIZER INC-2011012490

PATIENT
  Age: 87 Year
  Sex: Male

DRUGS (5)
  1. ZITHROMAC SR [Suspect]
     Indication: PNEUMONIA
     Dosage: 2 G, SINGLE
     Route: 048
     Dates: start: 20110117, end: 20110117
  2. CALONAL [Concomitant]
  3. AMLODIPINE [Concomitant]
  4. MUCODYNE [Concomitant]
  5. ASPIRIN [Concomitant]

REACTIONS (1)
  - CARDIAC ARREST [None]
